FAERS Safety Report 5656766-6 (Version None)
Quarter: 2008Q1

REPORT INFORMATION
  Report Type: 
  Country: None (occurrence: None)
  Receive Date: 20080307
  Receipt Date: 20080307
  Transmission Date: 20080703
  Serious: Yes (Hospitalization, Other)
  Sender: FDA-Public Use
  Company Number: None

PATIENT
  Age: 27 Year
  Sex: Female
  Weight: 58.9676 kg

DRUGS (4)
  1. LEXAPRO [Suspect]
     Indication: ANXIETY
     Dosage: PO
     Route: 048
     Dates: start: 20061220, end: 20070306
  2. LEXAPRO [Suspect]
     Indication: DEPRESSION
     Dosage: PO
     Route: 048
     Dates: start: 20061220, end: 20070306
  3. CELEXA [Suspect]
     Indication: ANXIETY
     Dosage: PO
     Route: 048
     Dates: start: 20070307, end: 20070601
  4. CELEXA [Suspect]
     Indication: DEPRESSION
     Dosage: PO
     Route: 048
     Dates: start: 20070307, end: 20070601

REACTIONS (3)
  - CONDITION AGGRAVATED [None]
  - DEPRESSION [None]
  - SUICIDE ATTEMPT [None]
